FAERS Safety Report 10918892 (Version 4)
Quarter: 2016Q4

REPORT INFORMATION
  Report Type: Spontaneous
  Country: US (occurrence: US)
  Receive Date: 20150316
  Receipt Date: 20161025
  Transmission Date: 20170206
  Serious: Yes (Other)
  Sender: FDA-Public Use
  Company Number: US-ASTELLAS-2015US002050

PATIENT
  Age: 62 Year
  Sex: Male

DRUGS (4)
  1. XTANDI [Suspect]
     Active Substance: ENZALUTAMIDE
     Indication: PROSTATE CANCER
     Route: 048
     Dates: start: 20150113
  2. OXYCODONE HYDROCHLORIDE. [Concomitant]
     Active Substance: OXYCODONE HYDROCHLORIDE
     Indication: PRODUCT USED FOR UNKNOWN INDICATION
     Route: 065
  3. LUPRON [Concomitant]
     Active Substance: LEUPROLIDE ACETATE
     Indication: PRODUCT USED FOR UNKNOWN INDICATION
     Dosage: UNK UNK, OTHER (ONCE EVERY 03 MONTHS)
     Route: 065
  4. RADIUM [Concomitant]
     Active Substance: RADIUM
     Indication: PRODUCT USED FOR UNKNOWN INDICATION
     Dosage: UNK UNK, OTHER (ONCE EVERY 05 WEEKS)
     Route: 065

REACTIONS (12)
  - Jaw disorder [Not Recovered/Not Resolved]
  - Cyst [Not Recovered/Not Resolved]
  - Blood urine present [Unknown]
  - Insomnia [Not Recovered/Not Resolved]
  - Hypersensitivity [Recovered/Resolved]
  - Overdose [Unknown]
  - Bone cancer [Not Recovered/Not Resolved]
  - Weight increased [Unknown]
  - Musculoskeletal chest pain [Recovered/Resolved]
  - Arthralgia [Recovered/Resolved]
  - Nephrolithiasis [Unknown]
  - Lethargy [Not Recovered/Not Resolved]

NARRATIVE: CASE EVENT DATE: 2015
